FAERS Safety Report 7583562-5 (Version None)
Quarter: 2011Q2

REPORT INFORMATION
  Report Type: 
  Country: None (occurrence: None)
  Receive Date: 20110630
  Receipt Date: 20110616
  Transmission Date: 20111010
  Serious: Yes (Hospitalization)
  Sender: FDA-Public Use
  Company Number: US-ROCHE-784595

PATIENT
  Age: 52 Year
  Sex: Male
  Weight: 84.8 kg

DRUGS (2)
  1. BEVACIZUMAB [Suspect]
     Indication: GLIOBLASTOMA MULTIFORME
     Route: 065
     Dates: start: 20110321, end: 20110401
  2. TEMOZOLOMIDE [Concomitant]
     Dates: start: 20110321, end: 20110401

REACTIONS (2)
  - MENINGITIS [None]
  - HYDROCEPHALUS [None]
